FAERS Safety Report 10465635 (Version 1)
Quarter: 2014Q3

REPORT INFORMATION
  Report Type: Spontaneous
  Country: DE (occurrence: DE)
  Receive Date: 20140920
  Receipt Date: 20140920
  Transmission Date: 20150326
  Serious: Yes (Hospitalization)
  Sender: FDA-Public Use
  Company Number: DE-MACLEODS PHARMACEUTICALS US LTD-MAC2014001357

PATIENT

DRUGS (7)
  1. CARVEDILOL. [Suspect]
     Active Substance: CARVEDILOL
     Indication: SUICIDE ATTEMPT
     Dosage: 1.75 G, UNK
     Route: 065
  2. AMITRIPTYLINE [Suspect]
     Active Substance: AMITRIPTYLINE
     Indication: SUICIDE ATTEMPT
     Dosage: 6 G, UNK
     Route: 065
  3. TORSEMIDE. [Suspect]
     Active Substance: TORSEMIDE
     Indication: SUICIDE ATTEMPT
     Dosage: 500 MG, UNK
     Route: 065
  4. NICOTINIC ACID [Suspect]
     Active Substance: NIACIN
     Indication: SUICIDE ATTEMPT
     Dosage: 28 G, UNK
     Route: 065
  5. AMLODIPINE BESYLATE. [Suspect]
     Active Substance: AMLODIPINE BESYLATE
     Indication: SUICIDE ATTEMPT
     Dosage: 300 MG, UNK
     Route: 065
  6. KETOPROFEN. [Suspect]
     Active Substance: KETOPROFEN
     Indication: SUICIDE ATTEMPT
     Dosage: 1.5 G, UNK
     Route: 065
  7. GABAPENTIN. [Suspect]
     Active Substance: GABAPENTIN
     Indication: SUICIDE ATTEMPT
     Dosage: 16 G, UNK
     Route: 065

REACTIONS (3)
  - Cardiac arrest [Recovered/Resolved]
  - Toxicity to various agents [Recovered/Resolved]
  - Overdose [Recovered/Resolved]
